FAERS Safety Report 18925289 (Version 1)
Quarter: 2021Q1

REPORT INFORMATION
  Report Type: Report from Study
  Country: US (occurrence: US)
  Receive Date: 20210222
  Receipt Date: 20210222
  Transmission Date: 20210420
  Serious: Yes (Hospitalization)
  Sender: FDA-Public Use
  Company Number: US-TEVA-2021-US-1881291

PATIENT
  Age: 64 Year
  Sex: Female

DRUGS (33)
  1. PACLITAXEL. [Suspect]
     Active Substance: PACLITAXEL
     Indication: TRIPLE NEGATIVE BREAST CANCER
     Dosage: DAY 1 OF 12 WEEKLY CYCLES (80 MG/M2)
     Route: 042
     Dates: start: 20150917, end: 20151203
  2. CYCLOPHOSPHAMIDE. [Suspect]
     Active Substance: CYCLOPHOSPHAMIDE
     Dosage: DAY 1 OF FOUR 14?DAY OR 21?DAY CYCLES (600 MG/M2)
     Route: 042
     Dates: start: 20151231, end: 20160114
  3. ONDANSETRON [Concomitant]
     Active Substance: ONDANSETRON
     Indication: PREMEDICATION
     Dosage: 8 MG,AS REQUIRED
     Route: 042
     Dates: start: 20150917, end: 20151203
  4. FOSAPREPITANT [Concomitant]
     Active Substance: FOSAPREPITANT
     Indication: NAUSEA
     Route: 042
     Dates: start: 20151231, end: 20160114
  5. VICTOZA [Concomitant]
     Active Substance: LIRAGLUTIDE
     Indication: TYPE 2 DIABETES MELLITUS
     Route: 058
  6. DEXAMETHASONE. [Concomitant]
     Active Substance: DEXAMETHASONE
     Indication: PREMEDICATION
     Route: 042
     Dates: start: 20150917, end: 20151230
  7. ATRAC TAIN [Concomitant]
     Indication: PAIN IN EXTREMITY
     Dosage: (1 DOSAGE FORMS,AS REQUIRED
     Route: 061
     Dates: start: 20151221
  8. COLACE [Concomitant]
     Active Substance: DOCUSATE SODIUM
     Indication: CONSTIPATION
     Dosage: (100 MG,AS REQUIRED
     Route: 048
  9. PEGFILGRASTIM [Concomitant]
     Active Substance: PEGFILGRASTIM
     Indication: PROPHYLAXIS
     Dosage: (6 MG,1 IN 1 D)
     Route: 058
     Dates: start: 20160101, end: 20160101
  10. FAMOTIDINE. [Concomitant]
     Active Substance: FAMOTIDINE
     Indication: PREMEDICATION
     Route: 042
     Dates: start: 20150917, end: 20151203
  11. REGLAN [Concomitant]
     Active Substance: METOCLOPRAMIDE HYDROCHLORIDE
     Indication: NAUSEA
     Dosage: 20 MG (5 MG,4 IN 1 D)
     Dates: start: 20160113
  12. PYRIDOXINE VITAMIN B6 [Concomitant]
     Indication: ORAL PAIN
     Dosage: 15 ML,AS REQUIRED)
     Route: 048
     Dates: start: 20151006
  13. DOXORUBICIN [Suspect]
     Active Substance: DOXORUBICIN
     Indication: TRIPLE NEGATIVE BREAST CANCER
     Dosage: DAY 1 OF FOUR 14?DAY OR 21?DAY CYCLES (60 MG/M2)
     Route: 042
     Dates: start: 20151231, end: 20160114
  14. NOVOLOG [Concomitant]
     Active Substance: INSULIN ASPART
     Indication: TYPE 2 DIABETES MELLITUS
     Route: 058
  15. CLARITIN [Concomitant]
     Active Substance: LORATADINE
     Indication: SEASONAL ALLERGY
     Dosage: 10 MG,AS REQUIRED
     Route: 048
     Dates: start: 20151015
  16. VITAMIN B100 [Concomitant]
     Indication: NUTRITIONAL SUPPLEMENTATION
     Dosage: 1 TABLET,1 IN 1 D
     Route: 048
  17. ALTEPLASE. [Concomitant]
     Active Substance: ALTEPLASE
     Indication: PROPHYLAXIS
     Dosage: (2 MG,AS REQUIRED)
     Route: 042
     Dates: start: 20151029
  18. FILGRASTIM [Concomitant]
     Active Substance: FILGRASTIM
     Indication: NEUTROPENIA
     Dosage: 300 MG,1 IN 1 D)
     Route: 058
     Dates: start: 20160121, end: 20160125
  19. DRAMAMINE [Concomitant]
     Active Substance: DIMENHYDRINATE
     Indication: MOTION SICKNESS
     Dosage: (50 MG,AS REQUIRED)
     Route: 048
  20. DEXAMETHASONE. [Concomitant]
     Active Substance: DEXAMETHASONE
     Route: 048
     Dates: start: 20151231
  21. PALONOSETRON. [Concomitant]
     Active Substance: PALONOSETRON HYDROCHLORIDE
     Indication: PREMEDICATION
     Route: 042
     Dates: start: 20150917, end: 20160114
  22. LORAZEPAM. [Concomitant]
     Active Substance: LORAZEPAM
     Dosage: 0.5 MG,AS REQUIRED
     Route: 048
     Dates: start: 20150917
  23. ATORVASTATIN [Concomitant]
     Active Substance: ATORVASTATIN
     Indication: HYPERLIPIDAEMIA
     Route: 048
  24. FLONASE [Concomitant]
     Active Substance: FLUTICASONE PROPIONATE
     Indication: SEASONAL ALLERGY
     Route: 045
     Dates: start: 2007
  25. PROMETHAZINE [Concomitant]
     Active Substance: PROMETHAZINE HYDROCHLORIDE
     Indication: SEASONAL ALLERGY
     Dosage: 25 MG,AS REQUIRED
     Route: 048
  26. ONDANSETRON [Concomitant]
     Active Substance: ONDANSETRON
     Dosage: 16 MG,AS REQUIRED
     Route: 042
     Dates: start: 20151231, end: 20151231
  27. PROCHLORPERAZINE. [Concomitant]
     Active Substance: PROCHLORPERAZINE
     Indication: PROPHYLAXIS
     Route: 048
     Dates: start: 20150917
  28. CARBOPLATIN. [Suspect]
     Active Substance: CARBOPLATIN
     Indication: TRIPLE NEGATIVE BREAST CANCER
     Dosage: DAY 1 OF FOUR 21?DAY CYCLES; DOSAGE: 6AUC
     Route: 042
     Dates: start: 20150917, end: 20151119
  29. ABT?888 [Suspect]
     Active Substance: VELIPARIB
     Indication: TRIPLE NEGATIVE BREAST CANCER
     Dosage: DAILY THROUGH CHEMOTHERAPY SEGMENT
     Route: 048
     Dates: start: 20150917
  30. VITAMIN D3 [Concomitant]
     Active Substance: CHOLECALCIFEROL
     Indication: NUTRITIONAL SUPPLEMENTATION
     Route: 048
  31. RANITIDINE. [Concomitant]
     Active Substance: RANITIDINE
     Indication: DYSPEPSIA
     Dosage: (300 MG,AS REQUIRED
     Route: 048
  32. LANTUS [Concomitant]
     Active Substance: INSULIN GLARGINE
     Indication: TYPE 2 DIABETES MELLITUS
     Route: 058
  33. ALOXI [Concomitant]
     Active Substance: PALONOSETRON HYDROCHLORIDE
     Indication: PROPHYLAXIS
     Dosage: 0.25 MG,AS REQUIRED
     Route: 042
     Dates: start: 20160114

REACTIONS (1)
  - Febrile neutropenia [Recovered/Resolved]

NARRATIVE: CASE EVENT DATE: 20160124
